FAERS Safety Report 16636795 (Version 8)
Quarter: 2021Q1

REPORT INFORMATION
  Report Type: Report from Study
  Country: DE (occurrence: DE)
  Receive Date: 20190726
  Receipt Date: 20210106
  Transmission Date: 20210419
  Serious: Yes (Death, Life-Threatening, Hospitalization)
  Sender: FDA-Public Use
  Company Number: PHHO2019DE001507

PATIENT
  Age: 74 Year
  Sex: Male
  Weight: 79.7 kg

DRUGS (1)
  1. SECUKINUMAB. [Suspect]
     Active Substance: SECUKINUMAB
     Indication: PSORIASIS
     Dosage: 150 MG, BID
     Route: 058
     Dates: start: 20181015, end: 20190402

REACTIONS (5)
  - Inguinal hernia [Recovered/Resolved]
  - Metastatic malignant melanoma [Fatal]
  - Femoral hernia [Recovered/Resolved]
  - Osteoarthritis [Recovered/Resolved]
  - Haematoma [Recovered/Resolved]

NARRATIVE: CASE EVENT DATE: 20190120
